FAERS Safety Report 10085394 (Version 4)
Quarter: 2014Q2

REPORT INFORMATION
  Report Type: Spontaneous
  Country: ES (occurrence: ES)
  Receive Date: 20140418
  Receipt Date: 20140530
  Transmission Date: 20141212
  Serious: Yes (Hospitalization, Other)
  Sender: FDA-Public Use
  Company Number: ES-AMGEN INC.-ESPSP2014015982

PATIENT
  Age: 65 Year
  Sex: Female

DRUGS (17)
  1. ENBREL [Suspect]
     Indication: RHEUMATOID ARTHRITIS
     Dosage: 50 MG, WEEKLY
     Route: 065
  2. ENBREL [Suspect]
     Dosage: 50 MG, WEEKLY
     Route: 065
     Dates: end: 2014
  3. LETROZOLE [Concomitant]
     Indication: CANCER SURGERY
     Dosage: 2.5 MG, 1X/DAY (EVERY 24 HOURS)
  4. PRANDIN                            /00882701/ [Concomitant]
     Indication: TYPE 2 DIABETES MELLITUS
     Dosage: 1 MG, 2X/DAY (EVERY 12 HOURS)
  5. SECALIP [Concomitant]
     Dosage: 145 MG, 1X/DAY
  6. ACFOL [Concomitant]
     Dosage: 5 MG, 1X/DAY
  7. VENLAFAXINE [Concomitant]
     Dosage: 150 MG, 2X/DAY (IN THE MORNING AND AT LUNCHTIME)
  8. REXER [Concomitant]
     Indication: INSOMNIA
     Dosage: 30 MG, 1X/DAY (AT NIGHT)
  9. LORAZEPAM [Concomitant]
     Dosage: UNK (HALF DF IN THE MORNING, HALF DF AT LUNCHTIME AND HALF DF AT DINNER)
  10. LANSOPRAZOL [Concomitant]
     Indication: PROPHYLAXIS
     Dosage: 1 DF, 1X/DAY
  11. LYRICA [Concomitant]
     Indication: PAIN
     Dosage: 75 MG, 2X/DAY (EVERY 12 HOURS)
  12. SINGULAIR [Concomitant]
     Indication: RESPIRATORY DISORDER
     Dosage: 10 MG, 1X/DAY
  13. SINTROM [Concomitant]
     Indication: THROMBOSIS
     Dosage: UNK
  14. VITAMIN C                          /00008001/ [Concomitant]
     Indication: PROPHYLAXIS
     Dosage: 500 MG, 2X/DAY (EVERY 12 HOURS)
  15. PREDNISONE [Concomitant]
     Indication: RESPIRATORY DISORDER
     Dosage: 5 MG, 1X/DAY (EVERY 24 HOURS)
  16. NOLOTIL                            /06276702/ [Concomitant]
     Indication: ANALGESIC THERAPY
     Dosage: UNK
  17. ATORVASTATIN [Concomitant]
     Indication: HYPERCHOLESTEROLAEMIA
     Dosage: 40 MG, 1X/DAY (EVERY 24 HOURS)

REACTIONS (6)
  - Pain in extremity [Unknown]
  - Respiratory tract infection [Unknown]
  - Catarrh [Unknown]
  - Injection site erythema [Unknown]
  - Drug ineffective [Unknown]
  - Bronchitis [Unknown]
